FAERS Safety Report 6399571-8 (Version None)
Quarter: 2009Q4

REPORT INFORMATION
  Report Type: 
  Country: None (occurrence: None)
  Receive Date: 20091013
  Receipt Date: 20091013
  Transmission Date: 20100525
  Serious: Yes (Hospitalization)
  Sender: FDA-Public Use
  Company Number: None

PATIENT
  Age: 97 Year
  Sex: Male

DRUGS (5)
  1. GMCSF [Suspect]
     Indication: PROSTATE CANCER
     Dosage: 250UG/M2 QD X 14 DAYS SQ FOLLOWED BY 7 DAYS OFF
     Route: 058
     Dates: start: 20080728, end: 20090614
  2. LOVENOX [Concomitant]
  3. MULTI-VITAMIN [Concomitant]
  4. METOPROLOL [Concomitant]
  5. FLOMAX [Concomitant]

REACTIONS (5)
  - ARRHYTHMIA [None]
  - LOSS OF CONSCIOUSNESS [None]
  - PLEURAL EFFUSION [None]
  - SUPRAVENTRICULAR TACHYCARDIA [None]
  - SYNCOPE [None]
